FAERS Safety Report 6819670-3 (Version None)
Quarter: 2010Q3

REPORT INFORMATION
  Report Type: 
  Country: None (occurrence: None)
  Receive Date: 20100707
  Receipt Date: 20100701
  Transmission Date: 20110219
  Serious: Yes (Death, Hospitalization)
  Sender: FDA-Public Use
  Company Number: US-BRACCO-004363

PATIENT
  Sex: Female

DRUGS (4)
  1. ISOVUE-370 [Suspect]
     Indication: COMPUTERISED TOMOGRAM
     Route: 042
     Dates: start: 20100414, end: 20100414
  2. ISOVUE-370 [Suspect]
     Indication: SUPERIOR VENA CAVAL OCCLUSION
     Route: 042
     Dates: start: 20100414, end: 20100414
  3. PREDNISONE TAB [Concomitant]
     Route: 048
     Dates: start: 20100413, end: 20100413
  4. BENADRYL [Concomitant]
     Route: 042
     Dates: start: 20100414, end: 20100414

REACTIONS (1)
  - ANAPHYLACTIC REACTION [None]
